FAERS Safety Report 6636567-2 (Version None)
Quarter: 2010Q1

REPORT INFORMATION
  Report Type: 
  Country: None (occurrence: None)
  Receive Date: 20100316
  Receipt Date: 20100302
  Transmission Date: 20100710
  Serious: Yes (Hospitalization)
  Sender: FDA-Public Use
  Company Number: NL-MEDIMMUNE-MEDI-0010714

PATIENT
  Sex: Male

DRUGS (1)
  1. SYNAGIS [Suspect]
     Route: 030
     Dates: start: 20091204, end: 20100222

REACTIONS (3)
  - DYSPHAGIA [None]
  - RESPIRATORY TRACT INFECTION [None]
  - SALIVARY HYPERSECRETION [None]
